FAERS Safety Report 9627071 (Version 6)
Quarter: 2014Q2

REPORT INFORMATION
  Report Type: Spontaneous
  Country: US (occurrence: None)
  Receive Date: 20131011
  Receipt Date: 20140404
  Transmission Date: 20141212
  Serious: Yes (Hospitalization, Other)
  Sender: FDA-Public Use
  Company Number: 2013US006511

PATIENT
  Age: 81 Year
  Sex: Male
  Weight: 60 kg

DRUGS (6)
  1. HORIZANT [Suspect]
     Indication: RESTLESS LEGS SYNDROME
     Dosage: ONE HALF (300 MG) TABLET
     Route: 048
     Dates: start: 20130801, end: 201308
  2. SULFAMETHOXAZOLE [Suspect]
     Indication: CELLULITIS
     Dosage: 1 TABLET (800 60)
     Route: 048
     Dates: start: 20130826
  3. TYLENOL W/CODEINE (CODEINE PHOSPHATE, PARACETAMOL) [Concomitant]
  4. ASPIRIN (ACETYLSALICYLIC ACID) [Concomitant]
  5. LASIX (FUROSEMIDE) [Concomitant]
  6. GABAPENTIN (GABAPENTIN) [Concomitant]

REACTIONS (13)
  - Blister [None]
  - Rash pruritic [None]
  - Rash erythematous [None]
  - Decreased appetite [None]
  - Weight decreased [None]
  - Fatigue [None]
  - Gingival pain [None]
  - Drug hypersensitivity [None]
  - Wrong technique in drug usage process [None]
  - Oral pain [None]
  - Pruritus [None]
  - Oral mucosal blistering [None]
  - Wound [None]
